FAERS Safety Report 16145015 (Version 1)
Quarter: 2019Q2

REPORT INFORMATION
  Report Type: Spontaneous
  Country: US (occurrence: US)
  Receive Date: 20190401
  Receipt Date: 20190401
  Transmission Date: 20190711
  Serious: Yes (Disabling)
  Sender: FDA-Public Use
  Company Number: None

PATIENT
  Age: 37 Year
  Sex: Female
  Weight: 56.25 kg

DRUGS (5)
  1. INGREZZA [Suspect]
     Active Substance: VALBENAZINE
     Indication: TARDIVE DYSKINESIA
     Dosage: ?          QUANTITY:1 CAPSULE(S);?
     Route: 048
     Dates: start: 20171207, end: 20171221
  2. NORTRIPTYLINE [Concomitant]
     Active Substance: NORTRIPTYLINE
  3. BACLOFEN. [Concomitant]
     Active Substance: BACLOFEN
  4. ADVIL [Concomitant]
     Active Substance: IBUPROFEN
  5. DIAZEPAM. [Concomitant]
     Active Substance: DIAZEPAM

REACTIONS (6)
  - Sedation complication [None]
  - Skin disorder [None]
  - Skin burning sensation [None]
  - Urticaria [None]
  - Perfume sensitivity [None]
  - Rash [None]

NARRATIVE: CASE EVENT DATE: 20171222
